FAERS Safety Report 11471259 (Version 4)
Quarter: 2016Q1

REPORT INFORMATION
  Report Type: Spontaneous
  Country: JP (occurrence: JP)
  Receive Date: 20150908
  Receipt Date: 20160123
  Transmission Date: 20160525
  Serious: Yes (Disabling)
  Sender: FDA-Public Use
  Company Number: JP-AMGEN-JPNSP2015091592

PATIENT
  Age: 74 Year
  Sex: Female
  Weight: 39 kg

DRUGS (8)
  1. DECADRON                           /00016002/ [Concomitant]
     Active Substance: DEXAMETHASONE
     Indication: OESOPHAGEAL CARCINOMA
  2. ONETAXOTERE [Concomitant]
     Active Substance: DOCETAXEL
     Indication: OESOPHAGEAL CARCINOMA
     Dosage: 75 MG, 13 TIMES
     Route: 042
     Dates: start: 20020629, end: 20130902
  3. CISPLATIN. [Concomitant]
     Active Substance: CISPLATIN
     Indication: OESOPHAGEAL CARCINOMA
     Dosage: 75 MG, 13 TIMES
     Route: 042
     Dates: start: 20120629, end: 20130902
  4. WARFARIN                           /00014803/ [Suspect]
     Active Substance: WARFARIN
     Indication: THROMBOSIS
     Dosage: 1 MG, UNK
     Route: 048
     Dates: start: 201306
  5. 5-FU                               /00098801/ [Concomitant]
     Active Substance: FLUOROURACIL
     Indication: OESOPHAGEAL CARCINOMA
     Dosage: 260 MG, 13 TIMES
     Route: 042
     Dates: start: 20120629, end: 20130902
  6. RANMARK [Suspect]
     Active Substance: DENOSUMAB
     Indication: METASTASES TO BONE
     Dosage: 120 MG, Q4WK
     Route: 058
     Dates: start: 20120623, end: 20131215
  7. TS-1 [Suspect]
     Active Substance: GIMERACIL\OTERACIL\TEGAFUR
     Indication: OESOPHAGEAL CARCINOMA
     Dosage: 80 MG, UNK
     Route: 048
  8. DECADRON                           /00016002/ [Concomitant]
     Active Substance: DEXAMETHASONE
     Indication: CHEMOTHERAPY
     Dosage: 3.3 MG, UNK
     Route: 042
     Dates: start: 20120629, end: 20130902

REACTIONS (1)
  - Osteonecrosis of jaw [Not Recovered/Not Resolved]

NARRATIVE: CASE EVENT DATE: 201412
